FAERS Safety Report 23032019 (Version 11)
Quarter: 2024Q3

REPORT INFORMATION
  Report Type: Report from Study
  Country: US (occurrence: US)
  Receive Date: 20231005
  Receipt Date: 20240926
  Transmission Date: 20241017
  Serious: Yes (Hospitalization, Other)
  Sender: SANDOZ
  Company Number: US-002147023-NVSC2020US047767

PATIENT
  Age: 22 Year
  Sex: Female
  Weight: 81.633 kg

DRUGS (50)
  1. TREPROSTINIL [Suspect]
     Active Substance: TREPROSTINIL
     Dosage: 116 NG/KG/MIN, CONT
     Route: 042
     Dates: start: 20191006
  2. TREPROSTINIL [Suspect]
     Active Substance: TREPROSTINIL
     Dosage: 116 NG/KG/MIN, CONT
     Route: 042
     Dates: start: 20190610
  3. TREPROSTINIL [Suspect]
     Active Substance: TREPROSTINIL
     Indication: Pulmonary arterial hypertension
     Dosage: 111 NG/KG/MIN, (STRENGTH: 5 MG/ML), CONT
     Route: 042
     Dates: start: 20190610
  4. TREPROSTINIL [Suspect]
     Active Substance: TREPROSTINIL
     Dosage: 114 NG/KG/MIN, (STRENGTH: 5 MG/ML), CONT
     Route: 042
  5. TREPROSTINIL [Suspect]
     Active Substance: TREPROSTINIL
     Dosage: 114 NG/KG/MIN, (STRENGTH: 5 MG/ML), CONT
     Route: 042
  6. TREPROSTINIL [Suspect]
     Active Substance: TREPROSTINIL
     Dosage: 114 NG/KG/MIN, (STRENGTH: 5 MG/ML), CONT
     Route: 042
  7. TREPROSTINIL [Suspect]
     Active Substance: TREPROSTINIL
     Dosage: 113 NG/KG/MIN, (STRENGTH: 10 MG/ML) CONT
     Route: 058
  8. TREPROSTINIL [Suspect]
     Active Substance: TREPROSTINIL
     Dosage: 117 NG/KG/MIN, (STRENGTH: 10 MG/M) CONT
     Route: 042
  9. TREPROSTINIL [Suspect]
     Active Substance: TREPROSTINIL
     Dosage: 117 NG/KG/MIN, (STRENGTH: 10 MG/M) CONT
     Route: 058
  10. TREPROSTINIL [Suspect]
     Active Substance: TREPROSTINIL
     Dosage: 117 NG/KG/MIN, CONT,, (STRENGTH: 10 MG/ML)
     Route: 042
  11. TREPROSTINIL [Suspect]
     Active Substance: TREPROSTINIL
     Dosage: 112 NG/KG/MIN, CONT, (STRENGTH: 10 MG/ML)
     Route: 042
  12. TREPROSTINIL [Suspect]
     Active Substance: TREPROSTINIL
     Dosage: 117 NG/KG/MIN, CONT, (STRENGTH: 10 MG/ML)
     Route: 042
  13. TREPROSTINIL [Suspect]
     Active Substance: TREPROSTINIL
     Dosage: 117 NG/KG/MIN, CONT, (STRENGTH: 10 MG/ML)
     Route: 042
  14. TREPROSTINIL [Suspect]
     Active Substance: TREPROSTINIL
     Indication: Pulmonary arterial hypertension
     Dosage: 112 NG/KG/MIN, (STRENGTH: 10 MG/ML), CONT,
     Route: 042
  15. TREPROSTINIL [Suspect]
     Active Substance: TREPROSTINIL
     Dosage: 112 NG/KG/MIN, CONT (STRENGTH: 10 MG/ML)
     Route: 042
  16. TREPROSTINIL [Suspect]
     Active Substance: TREPROSTINIL
     Dosage: 112 NG/KG/MIN, CONT (STRENGTH: 1 MG/ML)
     Route: 042
  17. TREPROSTINIL [Suspect]
     Active Substance: TREPROSTINIL
     Dosage: 112 NG/KG/MIN, CONT (STRENGTH: 1 MG/ML)
     Route: 042
  18. TREPROSTINIL [Suspect]
     Active Substance: TREPROSTINIL
     Dosage: 112 NG/KG/MIN, CONT (STRENGTH: 1 MG/ML)
     Route: 042
     Dates: start: 20221128
  19. TREPROSTINIL [Suspect]
     Active Substance: TREPROSTINIL
     Dosage: 112 NG/KG/MIN, CONT
     Route: 042
     Dates: start: 20190610
  20. TREPROSTINIL [Suspect]
     Active Substance: TREPROSTINIL
     Dosage: 112 NG/KG/M I N, CONT
     Route: 042
     Dates: start: 20221128
  21. TREPROSTINIL [Suspect]
     Active Substance: TREPROSTINIL
     Dosage: 116 NG/KG/M I N CONTINUOUS
     Route: 042
     Dates: start: 20190610
  22. TREPROSTINIL [Suspect]
     Active Substance: TREPROSTINIL
     Dosage: 116 NG/KG/M I N CONTINUOUS
     Route: 042
     Dates: start: 20191006
  23. TREPROSTINIL [Suspect]
     Active Substance: TREPROSTINIL
     Dosage: 116 NG/KG/M I N
     Route: 042
  24. ACETAMINOPHEN [Concomitant]
     Active Substance: ACETAMINOPHEN
     Indication: Product used for unknown indication
     Dosage: UNK
     Route: 065
  25. BENADRYL [Concomitant]
     Active Substance: DIPHENHYDRAMINE HYDROCHLORIDE
     Indication: Product used for unknown indication
     Dosage: UNK
     Route: 065
  26. BENTYL [Concomitant]
     Active Substance: DICYCLOMINE HYDROCHLORIDE
     Indication: Product used for unknown indication
     Dosage: UNK
     Route: 065
  27. BOSENTAN [Concomitant]
     Active Substance: BOSENTAN
     Indication: Product used for unknown indication
     Dosage: UNK
     Route: 065
  28. BUSPIRONE HCL [Concomitant]
     Active Substance: BUSPIRONE HYDROCHLORIDE
     Indication: Product used for unknown indication
     Dosage: UNK
     Route: 065
  29. VITAMINS [Concomitant]
     Active Substance: VITAMINS
     Indication: Product used for unknown indication
     Dosage: UNK
     Route: 065
  30. DIGOXIN [Concomitant]
     Active Substance: DIGOXIN
     Indication: Product used for unknown indication
     Dosage: UNK
     Route: 065
  31. ELIQUIS [Concomitant]
     Active Substance: APIXABAN
     Indication: Product used for unknown indication
     Dosage: UNK
     Route: 065
  32. LOPERAMIDE [Concomitant]
     Active Substance: LOPERAMIDE
     Indication: Product used for unknown indication
     Dosage: UNK
     Route: 065
  33. MACRODANTIN [Concomitant]
     Active Substance: NITROFURANTOIN
     Indication: Product used for unknown indication
     Dosage: UNK
     Route: 065
  34. MARINOL [Concomitant]
     Active Substance: DRONABINOL
     Indication: Product used for unknown indication
     Dosage: UNK
     Route: 065
  35. MELATONIN [Concomitant]
     Active Substance: MELATONIN
     Indication: Product used for unknown indication
     Dosage: UNK
     Route: 065
  36. MIDODRINE HYDROCHLORIDE [Concomitant]
     Active Substance: MIDODRINE HYDROCHLORIDE
     Indication: Product used for unknown indication
     Dosage: UNK
     Route: 065
  37. NEXIUM [Concomitant]
     Active Substance: ESOMEPRAZOLE MAGNESIUM
     Indication: Product used for unknown indication
     Dosage: UNK
     Route: 065
  38. ONDANSETRON HYDROCHLORIDE [Concomitant]
     Active Substance: ONDANSETRON HYDROCHLORIDE
     Indication: Product used for unknown indication
     Dosage: UNK
     Route: 065
  39. OXYGEN [Concomitant]
     Active Substance: OXYGEN
     Indication: Product used for unknown indication
     Dosage: UNK
     Route: 065
  40. SILDENAFIL CITRATE [Concomitant]
     Active Substance: SILDENAFIL CITRATE
     Indication: Product used for unknown indication
     Dosage: UNK
     Route: 065
  41. SPIRONOLACTONE [Concomitant]
     Active Substance: SPIRONOLACTONE
     Indication: Product used for unknown indication
     Dosage: UNK
     Route: 065
  42. SYNTHROID [Concomitant]
     Active Substance: LEVOTHYROXINE SODIUM
     Indication: Product used for unknown indication
     Dosage: UNK
     Route: 065
  43. TORSEMIDE [Concomitant]
     Active Substance: TORSEMIDE
     Indication: Product used for unknown indication
     Dosage: UNK
     Route: 065
  44. TRACLEER [Concomitant]
     Active Substance: BOSENTAN
     Indication: Product used for unknown indication
     Dosage: UNK
     Route: 065
  45. TUMS ULTRA [Concomitant]
     Active Substance: CALCIUM CARBONATE
     Indication: Product used for unknown indication
     Dosage: UNK
     Route: 065
  46. VITAMIN B12 [Concomitant]
     Active Substance: CYANOCOBALAMIN
     Indication: Product used for unknown indication
     Dosage: UNK
     Route: 065
  47. VITAMIN D3 [Concomitant]
     Active Substance: CHOLECALCIFEROL
     Indication: Product used for unknown indication
     Dosage: UNK
     Route: 065
  48. WARFARIN [Concomitant]
     Active Substance: WARFARIN
     Indication: Product used for unknown indication
     Dosage: UNK
     Route: 065
  49. ZOLOFT [Concomitant]
     Active Substance: SERTRALINE HYDROCHLORIDE
     Indication: Product used for unknown indication
     Dosage: UNK
     Route: 065
  50. ZYRTEC [Concomitant]
     Active Substance: CETIRIZINE HYDROCHLORIDE
     Indication: Product used for unknown indication
     Dosage: UNK
     Route: 065

REACTIONS (57)
  - Loss of consciousness [Recovering/Resolving]
  - Syncope [Unknown]
  - Vascular device infection [Unknown]
  - Hypothyroidism [Recovering/Resolving]
  - Respiratory distress [Unknown]
  - Pneumonia [Unknown]
  - Catheter site infection [Unknown]
  - Respiratory syncytial virus infection [Unknown]
  - Complication associated with device [Unknown]
  - Dehydration [Unknown]
  - Complication associated with device [Unknown]
  - Complication associated with device [Unknown]
  - Thyrotoxic crisis [Unknown]
  - Thrombosis [Unknown]
  - Haemorrhage [Unknown]
  - Pain in jaw [Recovering/Resolving]
  - Pulmonary hypertension [Unknown]
  - Infection [Unknown]
  - Irritable bowel syndrome [Unknown]
  - Feeling hot [Unknown]
  - Flushing [Unknown]
  - Heart rate increased [Unknown]
  - Oxygen saturation decreased [Unknown]
  - Skin discolouration [Unknown]
  - Dyspnoea [Recovered/Resolved]
  - Pallor [Unknown]
  - Peripheral swelling [Recovering/Resolving]
  - Chest pain [Unknown]
  - Catheter site erythema [Unknown]
  - Catheter site discharge [Unknown]
  - Catheter site bruise [Unknown]
  - Catheter site pain [Unknown]
  - Infusion site pain [Recovered/Resolved]
  - Accidental exposure to product [Unknown]
  - Epistaxis [Unknown]
  - Orthostatic hypotension [Unknown]
  - Laryngitis [Unknown]
  - Speech disorder [Unknown]
  - Complication associated with device [Unknown]
  - Upper respiratory tract infection [Unknown]
  - Blood pressure decreased [Unknown]
  - Diarrhoea [Unknown]
  - Hypotension [Unknown]
  - Rash [Unknown]
  - Headache [Unknown]
  - Dizziness [Unknown]
  - Feeling abnormal [Unknown]
  - Abdominal pain upper [Unknown]
  - Hyperhidrosis [Unknown]
  - Overdose [Unknown]
  - Drug ineffective [Unknown]
  - Device use error [Unknown]
  - Device infusion issue [Unknown]
  - Product physical issue [Unknown]
  - Device failure [Unknown]
  - Device leakage [Unknown]
  - Device leakage [Recovered/Resolved]

NARRATIVE: CASE EVENT DATE: 20200817
